FAERS Safety Report 6837117-8 (Version None)
Quarter: 2010Q3

REPORT INFORMATION
  Report Type: 
  Country: None (occurrence: None)
  Receive Date: 20100713
  Receipt Date: 20070502
  Transmission Date: 20110219
  Serious: No
  Sender: FDA-Public Use
  Company Number: US-PFIZER INC-2007037039

PATIENT
  Sex: Female
  Weight: 43.181 kg

DRUGS (10)
  1. CHANTIX [Suspect]
     Indication: SMOKING CESSATION THERAPY
     Route: 048
     Dates: start: 20070101
  2. LIPITOR [Concomitant]
     Route: 048
  3. PREMARIN [Concomitant]
     Route: 048
  4. VITAMINS [Concomitant]
     Route: 048
  5. ACETYLSALICYLIC ACID [Concomitant]
     Route: 048
  6. XANAX [Concomitant]
     Route: 048
  7. CALTRATE + D [Concomitant]
     Route: 048
  8. CENTRUM SILVER [Concomitant]
     Route: 048
  9. GINKGO BILOBA [Concomitant]
     Route: 048
  10. ALL OTHER THERAPEUTIC PRODUCTS [Concomitant]
     Route: 048

REACTIONS (2)
  - CONSTIPATION [None]
  - VOMITING [None]
